FAERS Safety Report 8601365-7 (Version None)
Quarter: 2012Q3

REPORT INFORMATION
  Report Type: 
  Country: None (occurrence: None)
  Receive Date: 20120817
  Receipt Date: 20120810
  Transmission Date: 20120928
  Serious: Yes (Other)
  Sender: FDA-Public Use
  Company Number: JP-BRISTOL-MYERS SQUIBB COMPANY-16778938

PATIENT
  Age: 50 Year
  Sex: Male
  Weight: 55 kg

DRUGS (1)
  1. ERBITUX [Suspect]
     Indication: RECTAL CANCER
     Dosage: LAST INF ON 10JUL2012 WITH DOSE 390MG 3-3JUL12:630MG 10-10JUL12:390MG
     Route: 042
     Dates: start: 20120703, end: 20120710

REACTIONS (1)
  - GASTROINTESTINAL HAEMORRHAGE [None]
